FAERS Safety Report 5118970-5 (Version None)
Quarter: 2006Q3

REPORT INFORMATION
  Report Type: 
  Country: None (occurrence: None)
  Receive Date: 20060927
  Receipt Date: 20060911
  Transmission Date: 20061208
  Serious: Yes (Death)
  Sender: FDA-Public Use
  Company Number: A-CH2006-13056

PATIENT
  Age: 37 Year
  Sex: Male

DRUGS (10)
  1. TRACLEER [Suspect]
     Indication: PULMONARY HYPERTENSION
     Dosage: SEE IMAGE
     Route: 048
     Dates: start: 20050823, end: 20050901
  2. TRACLEER [Suspect]
     Indication: PULMONARY HYPERTENSION
     Dosage: SEE IMAGE
     Route: 048
     Dates: start: 20050901, end: 20060902
  3. RAMIPRIL [Concomitant]
  4. METOPROLOL (METOPROLOL) [Concomitant]
  5. FUROSEMIDE [Concomitant]
  6. AQUAPHOR (MINERAL OIL LIGHT, PARAFFIN, WOOL ALCOHOLS, PETROLATUM) [Concomitant]
  7. PANTOPRAZOLE SODIUM [Concomitant]
  8. AMIODARONE (AMIODARONE) [Concomitant]
  9. IMAPRA [Concomitant]
  10. MARCUMAR [Concomitant]

REACTIONS (14)
  - ACUTE ABDOMEN [None]
  - ANOREXIA [None]
  - APPENDICITIS PERFORATED [None]
  - CARDIOPULMONARY FAILURE [None]
  - DIARRHOEA [None]
  - HEPATIC FAILURE [None]
  - ILEUS [None]
  - METABOLIC DISORDER [None]
  - MULTI-ORGAN FAILURE [None]
  - PERITONITIS [None]
  - PULMONARY OEDEMA [None]
  - RENAL FAILURE ACUTE [None]
  - RESPIRATORY FAILURE [None]
  - SEPTIC SHOCK [None]
